FAERS Safety Report 25427533 (Version 3)
Quarter: 2025Q3

REPORT INFORMATION
  Report Type: Report from Study
  Country: US (occurrence: US)
  Receive Date: 20250612
  Receipt Date: 20250828
  Transmission Date: 20251021
  Serious: No
  Sender: SUNOVION
  Company Number: US-SUMITOMO PHARMA SWITZERLAND GMBH-2025SPA006207

PATIENT
  Age: 70 Year
  Sex: Male

DRUGS (11)
  1. ORGOVYX [Suspect]
     Active Substance: RELUGOLIX
     Indication: Prostate cancer
     Dosage: 360 MG, SINGLE
     Route: 048
     Dates: start: 20250429, end: 20250429
  2. ORGOVYX [Suspect]
     Active Substance: RELUGOLIX
     Dosage: 120 MG, QD
     Route: 048
     Dates: start: 20250430
  3. ASPIRIN [Concomitant]
     Active Substance: ASPIRIN
  4. HUMALOG [Concomitant]
     Active Substance: INSULIN LISPRO
  5. LANTUS [Concomitant]
     Active Substance: INSULIN GLARGINE
  6. LOSARTAN [Concomitant]
     Active Substance: LOSARTAN
  7. METOPROLOL TARTRATE [Concomitant]
     Active Substance: METOPROLOL TARTRATE
  8. REPATHA [Concomitant]
     Active Substance: EVOLOCUMAB
  9. TACROLIMUS [Concomitant]
     Active Substance: TACROLIMUS
  10. TADALAFIL [Concomitant]
     Active Substance: TADALAFIL
  11. UBIQUINOL [Concomitant]
     Active Substance: UBIQUINOL

REACTIONS (3)
  - Toothache [Recovered/Resolved]
  - Heart rate abnormal [Unknown]
  - Hot flush [Not Recovered/Not Resolved]
